FAERS Safety Report 5756353-5 (Version None)
Quarter: 2008Q2

REPORT INFORMATION
  Report Type: 
  Country: None (occurrence: None)
  Receive Date: 20080528
  Receipt Date: 20080528
  Transmission Date: 20081010
  Serious: Yes (Hospitalization)
  Sender: FDA-Public Use
  Company Number: None

PATIENT
  Age: 64 Year
  Sex: Male
  Weight: 67 kg

DRUGS (2)
  1. DOCETAXEL [Suspect]
     Indication: METASTATIC SQUAMOUS CELL CARCINOMA
     Dosage: 137 MG Q 21 DAYS IV
     Route: 042
     Dates: start: 20080221, end: 20080221
  2. ZACTIMA (ZD 6474) [Suspect]
     Indication: METASTATIC SQUAMOUS CELL CARCINOMA
     Dosage: 100 MG QD PO
     Route: 048
     Dates: start: 20080221, end: 20080225

REACTIONS (2)
  - ABDOMINAL PAIN [None]
  - ORAL INTAKE REDUCED [None]
